FAERS Safety Report 15836074 (Version 1)
Quarter: 2019Q1

REPORT INFORMATION
  Report Type: Report from Study
  Country: US (occurrence: US)
  Receive Date: 20190117
  Receipt Date: 20190117
  Transmission Date: 20190417
  Serious: Yes (Other)
  Sender: FDA-Public Use
  Company Number: US-SA-2019SA010260

PATIENT
  Age: 80 Year
  Sex: Female

DRUGS (1)
  1. ENOXAPARIN SODIUM. [Suspect]
     Active Substance: ENOXAPARIN SODIUM
     Indication: THROMBOSIS
     Dosage: UNK UNK, BID (MORNING AND NIGHT)
     Route: 058
     Dates: start: 20181128, end: 20181231

REACTIONS (1)
  - Neoplasm malignant [Not Recovered/Not Resolved]
